FAERS Safety Report 6158422-7 (Version None)
Quarter: 2009Q2

REPORT INFORMATION
  Report Type: 
  Country: None (occurrence: None)
  Receive Date: 20090417
  Receipt Date: 20090408
  Transmission Date: 20091009
  Serious: Yes (Other)
  Sender: FDA-Public Use
  Company Number: CA-BAYER-200917931NA

PATIENT
  Age: 75 Year
  Sex: Male
  Weight: 74 kg

DRUGS (16)
  1. AVELOX [Suspect]
     Indication: DRUG USE FOR UNKNOWN INDICATION
  2. UNIPHYL [Suspect]
     Indication: DRUG USE FOR UNKNOWN INDICATION
  3. UNIPHYL [Suspect]
  4. ADVAIR HFA [Concomitant]
     Route: 055
  5. ALLOPURINOL [Concomitant]
  6. ALTACE [Concomitant]
  7. ASPIRIN [Concomitant]
  8. COLACE [Concomitant]
  9. GLUCOPHAGE [Concomitant]
  10. LAMISIL [Concomitant]
  11. NORVASC [Concomitant]
  12. PREDNISONE [Concomitant]
  13. SOLU-MEDROL [Concomitant]
     Route: 042
  14. SPIRIVA [Concomitant]
     Route: 055
  15. VENTOLIN [Concomitant]
     Route: 055
  16. ZAROXOLYN [Concomitant]

REACTIONS (1)
  - ANTASTHMATIC DRUG LEVEL ABOVE THERAPEUTIC [None]
